FAERS Safety Report 17188204 (Version 1)
Quarter: 2019Q4

REPORT INFORMATION
  Report Type: Spontaneous
  Country: US (occurrence: US)
  Receive Date: 20191221
  Receipt Date: 20191221
  Transmission Date: 20200122
  Serious: Yes (Other)
  Sender: FDA-Public Use
  Company Number: US-MYLANLABS-2019M1123988

PATIENT
  Sex: Male

DRUGS (1)
  1. ALPRAZOLAM. [Suspect]
     Active Substance: ALPRAZOLAM
     Indication: PRODUCT USED FOR UNKNOWN INDICATION
     Dosage: UNK

REACTIONS (14)
  - Rash [Unknown]
  - Nasopharyngitis [Unknown]
  - Paranoia [Unknown]
  - Weight decreased [Unknown]
  - Visual impairment [Unknown]
  - Impaired healing [Unknown]
  - Mood swings [Unknown]
  - Chills [Unknown]
  - Tachyphrenia [Unknown]
  - Palpitations [Unknown]
  - Arthralgia [Unknown]
  - Ageusia [Unknown]
  - Insomnia [Unknown]
  - Diarrhoea [Unknown]
